FAERS Safety Report 24370105 (Version 1)
Quarter: 2024Q3

REPORT INFORMATION
  Report Type: Report from Study
  Country: US (occurrence: US)
  Receive Date: 20240927
  Receipt Date: 20240927
  Transmission Date: 20241017
  Serious: No
  Sender: ROCHE
  Company Number: US-ROCHE-3550165

PATIENT
  Age: 93 Year
  Sex: Female

DRUGS (4)
  1. LUCENTIS [Suspect]
     Active Substance: RANIBIZUMAB
     Indication: Neovascular age-related macular degeneration
     Dosage: EVERY 6 WEEK AND THAN SWITCH EVERY 7 WEEKS, LAST DATE OF LUCENTIS: 04/APR/2018, 31/JAN/2018, 28/FEB/
     Route: 050
     Dates: start: 20160926
  2. LUCENTIS [Suspect]
     Active Substance: RANIBIZUMAB
     Indication: Choroidal neovascularisation
  3. VABYSMO [Suspect]
     Active Substance: FARICIMAB-SVOA
     Indication: Neovascular age-related macular degeneration
     Route: 065
  4. VABYSMO [Suspect]
     Active Substance: FARICIMAB-SVOA
     Indication: Choroidal neovascularisation

REACTIONS (3)
  - Auditory disorder [Not Recovered/Not Resolved]
  - Memory impairment [Not Recovered/Not Resolved]
  - Visual impairment [Not Recovered/Not Resolved]
